FAERS Safety Report 12440962 (Version 1)
Quarter: 2016Q2

REPORT INFORMATION
  Report Type: Report from Study
  Country: CA (occurrence: CA)
  Receive Date: 20160607
  Receipt Date: 20160607
  Transmission Date: 20160815
  Serious: Yes (Other)
  Sender: FDA-Public Use
  Company Number: CA-AMGEN-CANSL2016070189

PATIENT
  Age: 82 Year
  Sex: Female

DRUGS (5)
  1. CALCIUM [Concomitant]
     Active Substance: CALCIUM
  2. VITAMIN D [Concomitant]
     Active Substance: CHOLECALCIFEROL
  3. PROLIA [Suspect]
     Active Substance: DENOSUMAB
     Indication: PRODUCT USED FOR UNKNOWN INDICATION
     Dosage: UNK
     Route: 065
     Dates: start: 20110929
  4. MAGNESIUM [Concomitant]
     Active Substance: MAGNESIUM
  5. FLAXSEED [Concomitant]
     Active Substance: FLAX SEED

REACTIONS (2)
  - Tooth abscess [Unknown]
  - Infection [Unknown]

NARRATIVE: CASE EVENT DATE: 201605
